FAERS Safety Report 12432007 (Version 3)
Quarter: 2016Q3

REPORT INFORMATION
  Report Type: Report from Study
  Country: US (occurrence: US)
  Receive Date: 20160603
  Receipt Date: 20160719
  Transmission Date: 20161109
  Serious: Yes (Death, Hospitalization, Other)
  Sender: FDA-Public Use
  Company Number: US-GILEAD-2016-0211528

PATIENT
  Age: 13 Year
  Sex: Male
  Weight: 49 kg

DRUGS (8)
  1. ASA [Concomitant]
     Active Substance: ASPIRIN
  2. XOPENEX [Concomitant]
     Active Substance: LEVALBUTEROL HYDROCHLORIDE
  3. ADCIRCA [Concomitant]
     Active Substance: TADALAFIL
  4. AMBRISENTAN [Suspect]
     Active Substance: AMBRISENTAN
     Indication: PRODUCT USED FOR UNKNOWN INDICATION
     Dosage: 10 MG, QD
     Route: 065
     Dates: start: 20140804
  5. DILANTIN [Concomitant]
     Active Substance: PHENYTOIN
  6. PLAVIX [Concomitant]
     Active Substance: CLOPIDOGREL BISULFATE
  7. ENALAPRIL [Concomitant]
     Active Substance: ENALAPRIL
  8. LASIX [Concomitant]
     Active Substance: FUROSEMIDE

REACTIONS (3)
  - Off label use [Unknown]
  - Death [Fatal]
  - Tricuspid valve incompetence [Unknown]

NARRATIVE: CASE EVENT DATE: 20140804
